FAERS Safety Report 4866770-3 (Version None)
Quarter: 2005Q4

REPORT INFORMATION
  Report Type: 
  Country: None (occurrence: None)
  Receive Date: 20051221
  Receipt Date: 20051212
  Transmission Date: 20060501
  Serious: Yes (Other)
  Sender: FDA-Public Use
  Company Number: 2005-12-0524

PATIENT
  Age: 53 Year
  Sex: Male

DRUGS (2)
  1. INTERFERON ALFA [Suspect]
     Indication: HEPATITIS C
     Dosage: 6 MIU TIW
     Dates: start: 20010801, end: 20010101
  2. RIBAVIRIN [Suspect]
     Indication: HEPATITIS C
     Dosage: 1000 MG QD
     Dates: start: 20010801, end: 20010901

REACTIONS (1)
  - COLITIS ULCERATIVE [None]
